FAERS Safety Report 11210663 (Version 1)
Quarter: 2015Q2

REPORT INFORMATION
  Report Type: Spontaneous
  Country: US (occurrence: US)
  Receive Date: 20150622
  Receipt Date: 20150622
  Transmission Date: 20150821
  Serious: No
  Sender: FDA-Public Use
  Company Number: US-SA-2014SA131577

PATIENT
  Age: 72 Year
  Sex: Female

DRUGS (1)
  1. HECTOROL [Suspect]
     Active Substance: DOXERCALCIFEROL
     Indication: VITAMIN D
     Dosage: FREQUENCY: 3 INJECTIONS PER WEEK
     Route: 065
     Dates: start: 20140601

REACTIONS (1)
  - Pruritus [Not Recovered/Not Resolved]
